FAERS Safety Report 21977643 (Version 2)
Quarter: 2023Q2

REPORT INFORMATION
  Report Type: Spontaneous
  Country: US (occurrence: US)
  Receive Date: 20230210
  Receipt Date: 20230418
  Transmission Date: 20230722
  Serious: No
  Sender: FDA-Public Use
  Company Number: US-BoehringerIngelheim-2023-BI-218059

PATIENT
  Age: 79 Year
  Sex: Male

DRUGS (1)
  1. STIOLTO RESPIMAT [Suspect]
     Active Substance: OLODATEROL HYDROCHLORIDE\TIOTROPIUM BROMIDE MONOHYDRATE
     Indication: Product used for unknown indication
     Dosage: TWO PUFFS DAILY
     Dates: start: 2019

REACTIONS (4)
  - Product dose omission issue [Unknown]
  - Wheezing [Not Recovered/Not Resolved]
  - Hypertension [Unknown]
  - Device issue [Unknown]

NARRATIVE: CASE EVENT DATE: 20230205
